FAERS Safety Report 6092521-3 (Version None)
Quarter: 2009Q1

REPORT INFORMATION
  Report Type: 
  Country: None (occurrence: None)
  Receive Date: 20090223
  Receipt Date: 20090223
  Transmission Date: 20090719
  Serious: Yes (Hospitalization)
  Sender: FDA-Public Use
  Company Number: None

PATIENT
  Sex: Male
  Weight: 84.9 kg

DRUGS (9)
  1. TARCEVA [Suspect]
     Indication: RENAL CELL CARCINOMA
     Dosage: 125MG  QOD ORAL
     Route: 048
     Dates: start: 20080825, end: 20090219
  2. SUTENT [Suspect]
     Indication: RENAL CELL CARCINOMA
     Dosage: 37.5 MG QOD ORAL
     Route: 048
     Dates: start: 20080825, end: 20090219
  3. OXYCONTIN PRN [Concomitant]
  4. ASPIRIN [Concomitant]
  5. PREDNISONE [Concomitant]
  6. PERCOCET [Concomitant]
  7. VERAPAMIL HYDROCHOLORIDE [Concomitant]
  8. ALBUTEROL SULFATE AUTOHALER [Concomitant]
  9. MULTI-VITAMIN [Concomitant]

REACTIONS (1)
  - NEPHROLITHIASIS [None]
